FAERS Safety Report 5585473-3 (Version None)
Quarter: 2008Q1

REPORT INFORMATION
  Report Type: 
  Country: None (occurrence: None)
  Receive Date: 20080104
  Receipt Date: 20080104
  Transmission Date: 20080703
  Serious: Yes (Other)
  Sender: FDA-Public Use
  Company Number: None

PATIENT
  Sex: Male
  Weight: 75.2971 kg

DRUGS (1)
  1. VIAGRA [Suspect]
     Indication: ERECTILE DYSFUNCTION
     Dosage: 100 MG  TWICE WEEKLY
     Dates: start: 20030101, end: 20071231

REACTIONS (2)
  - DEAFNESS UNILATERAL [None]
  - GASTROOESOPHAGEAL REFLUX DISEASE [None]
